FAERS Safety Report 19449278 (Version 2)
Quarter: 2021Q4

REPORT INFORMATION
  Report Type: Spontaneous
  Country: US (occurrence: US)
  Receive Date: 20210622
  Receipt Date: 20211008
  Transmission Date: 20220303
  Serious: No
  Sender: FDA-Public Use
  Company Number: US-BAYER-2021-162038

PATIENT
  Age: 46 Year
  Sex: Female

DRUGS (3)
  1. SKYLA [Suspect]
     Active Substance: LEVONORGESTREL
     Indication: Contraception
     Dosage: 14 ?G, CONT
     Route: 015
     Dates: start: 20210209
  2. FORTEO [Concomitant]
     Active Substance: TERIPARATIDE
  3. TYMLOS [Concomitant]
     Active Substance: ABALOPARATIDE

REACTIONS (2)
  - Drug interaction [None]
  - Hypercalcaemia [None]

NARRATIVE: CASE EVENT DATE: 20210101
